FAERS Safety Report 6335645-5 (Version None)
Quarter: 2009Q3

REPORT INFORMATION
  Report Type: 
  Country: None (occurrence: None)
  Receive Date: 20090826
  Receipt Date: 20090817
  Transmission Date: 20100115
  Serious: Yes (Other)
  Sender: FDA-Public Use
  Company Number: TOR 2009-0027

PATIENT
  Age: 60 Year
  Sex: Female

DRUGS (3)
  1. FARESTON [Suspect]
     Indication: BREAST CANCER
     Dosage: 120 MG ORAL
     Route: 048
     Dates: start: 20090205, end: 20090331
  2. LAC B [Concomitant]
  3. GASTER [Concomitant]

REACTIONS (1)
  - JAUNDICE [None]
